FAERS Safety Report 13029902 (Version 1)
Quarter: 2016Q4

REPORT INFORMATION
  Report Type: Spontaneous
  Country: US (occurrence: US)
  Receive Date: 20161215
  Receipt Date: 20161215
  Transmission Date: 20170207
  Serious: No
  Sender: FDA-Public Use
  Company Number: US-009507513-1612USA001719

PATIENT
  Age: 23 Year
  Sex: Female
  Weight: 58.96 kg

DRUGS (1)
  1. NEXPLANON [Suspect]
     Active Substance: ETONOGESTREL
     Indication: CONTRACEPTION
     Dosage: 1 DF, FREQUENCY REPORTED AS 3 YEARS
     Route: 059
     Dates: start: 201603

REACTIONS (2)
  - Headache [Unknown]
  - Menstrual disorder [Unknown]

NARRATIVE: CASE EVENT DATE: 201609
